FAERS Safety Report 13826556 (Version 1)
Quarter: 2017Q3

REPORT INFORMATION
  Report Type: Spontaneous
  Country: US (occurrence: US)
  Receive Date: 20170802
  Receipt Date: 20170802
  Transmission Date: 20171127
  Serious: No
  Sender: FDA-Public Use
  Company Number: US-ROCHE-640350

PATIENT
  Sex: Female
  Weight: 158 kg

DRUGS (5)
  1. SANTONIN [Concomitant]
     Indication: HYPERTONIC BLADDER
     Route: 048
  2. CALCIUM/VITAMIN D [Concomitant]
     Active Substance: CALCIUM\VITAMIN D
     Indication: ROUTINE HEALTH MAINTENANCE
  3. CENTRUM SILVER [Concomitant]
     Active Substance: MINERALS\VITAMINS
     Indication: ROUTINE HEALTH MAINTENANCE
     Dosage: FREQUENCY: DAILY.
     Route: 048
  4. SYNTHROID [Concomitant]
     Active Substance: LEVOTHYROXINE SODIUM
     Indication: HYPOTHYROIDISM
     Route: 048
  5. BONIVA [Suspect]
     Active Substance: IBANDRONATE SODIUM
     Indication: OSTEOPENIA
     Dosage: FORM: PILL
     Route: 048
     Dates: start: 20090603, end: 20090607

REACTIONS (8)
  - Musculoskeletal pain [Recovering/Resolving]
  - Dyspepsia [Unknown]
  - Pain in jaw [Not Recovered/Not Resolved]
  - Headache [Unknown]
  - Myalgia [Unknown]
  - Chest pain [Recovering/Resolving]
  - Influenza like illness [Unknown]
  - Diarrhoea [Unknown]
